FAERS Safety Report 5382148-0 (Version None)
Quarter: 2007Q3

REPORT INFORMATION
  Report Type: 
  Country: None (occurrence: None)
  Receive Date: 20070705
  Receipt Date: 20070618
  Transmission Date: 20080115
  Serious: Yes (Hospitalization, Other)
  Sender: FDA-Public Use
  Company Number: 220001L07GBR

PATIENT
  Age: 36 Year
  Sex: Male
  Weight: 90 kg

DRUGS (16)
  1. SOMATROPIN      (SOMATROPIN) [Suspect]
     Dosage: 4 IU, 1 IN 1 DAYS
  2. ANASTROZOLE [Concomitant]
  3. CHORIONIC GONADOTROPHIN             (CHORIONIC GONADOTROPHIN) [Concomitant]
  4. CLENBUTEROL HYDROCHLORIDE       (CLENBUTEROL HYDROCHLORIDE) [Concomitant]
  5. DECA-DURABOLIN [Concomitant]
  6. FLUOXYMESTERONE    (FLYOXYMESTERONE) [Concomitant]
  7. INSULIN (INSULIN) [Concomitant]
  8. LIOTHYRONINE SODIUM [Concomitant]
  9. MESTEROLONE (MESTEROLONE) [Concomitant]
  10. OXYMETHOLONE (OXYMETHOLONE) [Concomitant]
  11. SPIRONOLACTONE [Concomitant]
  12. STANOZOLOL [Concomitant]
  13. TESTOSTERONE ENANTHATE  (TESTOSTERONE ENANTATE) [Concomitant]
  14. TESTOSTERONE PROPIONATE  (TESTOSTERONE PROPIONATE) [Concomitant]
  15. MENTHANDROSTENOLONE          (METANDIENONE) [Concomitant]
  16. BOLDENONE UNDECYLENATE           (METANDIENONE) [Concomitant]

REACTIONS (7)
  - DIABETES MELLITUS [None]
  - HEPATITIS ACUTE [None]
  - HYPERGLYCAEMIA [None]
  - HYPOGLYCAEMIA [None]
  - KIDNEY ENLARGEMENT [None]
  - RENAL FAILURE ACUTE [None]
  - WEIGHT DECREASED [None]
